FAERS Safety Report 20429683 (Version 1)
Quarter: 2022Q1

REPORT INFORMATION
  Report Type: Report from Study
  Country: FR (occurrence: FR)
  Receive Date: 20220204
  Receipt Date: 20220204
  Transmission Date: 20220423
  Serious: Yes (Other)
  Sender: FDA-Public Use
  Company Number: FR-SERVIER-S19009377

PATIENT

DRUGS (9)
  1. PEGASPARGASE [Suspect]
     Active Substance: PEGASPARGASE
     Indication: Acute lymphocytic leukaemia
     Dosage: 4000 IU, QD, ON D4
     Route: 042
     Dates: start: 20190624
  2. VINCRISTINE [Suspect]
     Active Substance: VINCRISTINE
     Indication: Acute lymphocytic leukaemia
     Dosage: 2 MG, ON DAY 1, 8, 15 AND 22
     Route: 042
     Dates: start: 20190621, end: 20190712
  3. IDARUBICIN [Suspect]
     Active Substance: IDARUBICIN
     Indication: Acute lymphocytic leukaemia
     Dosage: 50 MG, ON DAY 1, 8, 15 AND 22
     Route: 042
     Dates: start: 20190621, end: 20190712
  4. DEXAMETHASONE [Suspect]
     Active Substance: DEXAMETHASONE
     Indication: Acute lymphocytic leukaemia
     Dosage: 16 MG, ON DAY 1, 7, 15 AND 21
     Route: 048
     Dates: start: 20190621, end: 20190711
  5. METHOTREXATE [Suspect]
     Active Substance: METHOTREXATE
     Indication: Acute lymphocytic leukaemia
     Dosage: 15 MG, ON DAY 4 AND 32
     Route: 037
     Dates: start: 20190624, end: 20190805
  6. CYTARABINE [Suspect]
     Active Substance: CYTARABINE
     Indication: Acute lymphocytic leukaemia
     Dosage: 30 MG, ON DAY 4 AND 32
     Route: 037
     Dates: start: 20190624, end: 20190805
  7. HYDROCORTISONE [Suspect]
     Active Substance: HYDROCORTISONE
     Indication: Acute lymphocytic leukaemia
     Dosage: 15 MG, ON DAY 4 AND 32
     Route: 037
     Dates: start: 20190624, end: 20190805
  8. CYCLOPHOSPHAMIDE [Suspect]
     Active Substance: CYCLOPHOSPHAMIDE
     Indication: Acute lymphocytic leukaemia
     Dosage: 1700 MG, ON DAY 29
     Route: 042
     Dates: start: 20190802, end: 20190802
  9. DOXORUBICIN [Suspect]
     Active Substance: DOXORUBICIN
     Indication: Acute lymphocytic leukaemia
     Dosage: UNK, ON D1, D8, D15, D22
     Route: 065
     Dates: start: 20190621, end: 20190712

REACTIONS (2)
  - Mucosal inflammation [Recovered/Resolved]
  - Hepatic cytolysis [Recovered/Resolved]

NARRATIVE: CASE EVENT DATE: 20190715
